FAERS Safety Report 23350820 (Version 1)
Quarter: 2023Q4

REPORT INFORMATION
  Report Type: Report from Study
  Country: EG (occurrence: EG)
  Receive Date: 20231229
  Receipt Date: 20231229
  Transmission Date: 20240110
  Serious: Yes (Other)
  Sender: FDA-Public Use
  Company Number: EG-SANDOZ-SDZ2023EG072441

PATIENT
  Sex: Female
  Weight: 75 kg

DRUGS (1)
  1. OMNITROPE [Suspect]
     Active Substance: SOMATROPIN
     Indication: Growth hormone deficiency
     Dosage: 0.7 MG, QD
     Route: 058

REACTIONS (6)
  - Headache [Recovered/Resolved]
  - Dizziness [Recovered/Resolved]
  - Laziness [Recovered/Resolved]
  - Pain [Recovered/Resolved]
  - Drug administered in wrong device [Recovered/Resolved]
  - Incorrect dose administered [Recovered/Resolved]
